FAERS Safety Report 5494523-4 (Version None)
Quarter: 2007Q4

REPORT INFORMATION
  Report Type: 
  Country: None (occurrence: None)
  Receive Date: 20071024
  Receipt Date: 20071011
  Transmission Date: 20080405
  Serious: Yes (Hospitalization)
  Sender: FDA-Public Use
  Company Number: US-AMGEN-US246147

PATIENT
  Sex: Female
  Weight: 88.5 kg

DRUGS (8)
  1. VECTIBIX [Suspect]
     Indication: COLORECTAL CANCER
     Route: 042
     Dates: start: 20070827, end: 20070827
  2. OXYCONTIN [Concomitant]
     Route: 065
     Dates: start: 20021201
  3. CALCIUM [Concomitant]
     Route: 065
     Dates: start: 20070827, end: 20070827
  4. MAGNESIUM SULFATE [Concomitant]
     Route: 065
     Dates: start: 20070827, end: 20070827
  5. PERCOCET [Concomitant]
     Route: 065
  6. AMBIEN [Concomitant]
     Route: 065
  7. ALBUTEROL [Concomitant]
     Route: 055
  8. COLACE [Concomitant]
     Route: 065

REACTIONS (2)
  - LEUKOCYTOCLASTIC VASCULITIS [None]
  - SWEAT GLAND INFECTION [None]
